FAERS Safety Report 14709836 (Version 1)
Quarter: 2018Q1

REPORT INFORMATION
  Report Type: Spontaneous
  Country: US (occurrence: US)
  Receive Date: 20180329
  Receipt Date: 20180329
  Transmission Date: 20180509
  Serious: Yes (Hospitalization)
  Sender: FDA-Public Use
  Company Number: None

PATIENT
  Age: 69 Year
  Sex: Male

DRUGS (1)
  1. RANOLAZINE. [Suspect]
     Active Substance: RANOLAZINE
     Route: 048
     Dates: end: 20180325

REACTIONS (5)
  - Chest pain [None]
  - Diabetic nephropathy [None]
  - Dyspnoea [None]
  - Muscular weakness [None]
  - Hyperkalaemia [None]

NARRATIVE: CASE EVENT DATE: 20180325
